FAERS Safety Report 12623194 (Version 2)
Quarter: 2016Q3

REPORT INFORMATION
  Report Type: Spontaneous
  Country: US (occurrence: US)
  Receive Date: 20160804
  Receipt Date: 20160810
  Transmission Date: 20161109
  Serious: No
  Sender: FDA-Public Use
  Company Number: US-PFIZER INC-2016370051

PATIENT
  Age: 49 Year
  Sex: Female
  Weight: 92 kg

DRUGS (2)
  1. XELJANZ [Suspect]
     Active Substance: TOFACITINIB CITRATE
     Indication: RHEUMATOID ARTHRITIS
     Dosage: 5 MG, 2X/DAY
     Route: 048
     Dates: end: 201607
  2. XELJANZ [Suspect]
     Active Substance: TOFACITINIB CITRATE
     Dosage: 5 MG, 1X/DAY

REACTIONS (7)
  - Tonsillitis [Recovered/Resolved]
  - Sinusitis [Recovering/Resolving]
  - Intentional product misuse [Unknown]
  - Immune system disorder [Unknown]
  - Seasonal allergy [Unknown]
  - Oral herpes [Unknown]
  - Scar [Unknown]

NARRATIVE: CASE EVENT DATE: 2016
